FAERS Safety Report 9293526 (Version 2)
Quarter: 2013Q2

REPORT INFORMATION
  Report Type: Spontaneous
  Country: TR (occurrence: TR)
  Receive Date: 20130516
  Receipt Date: 20130520
  Transmission Date: 20140414
  Serious: Yes (Hospitalization)
  Sender: FDA-Public Use
  Company Number: TR-VERTEX PHARMACEUTICALS INC-2013-006075

PATIENT
  Age: 70 Year
  Sex: Female

DRUGS (4)
  1. INCIVO [Suspect]
     Indication: HEPATITIS C
     Dosage: 750 MG, TID
     Route: 048
  2. RIBAVIRIN [Suspect]
     Indication: HEPATITIS C
     Dosage: UNK
     Route: 048
  3. RIBAVIRIN [Suspect]
     Dosage: UNK
     Route: 048
  4. PEGINTERFERON ALFA [Suspect]
     Indication: HEPATITIS C
     Dosage: UNK
     Route: 058

REACTIONS (12)
  - Cholecystitis acute [Recovered/Resolved]
  - Sepsis [Recovered/Resolved]
  - Pneumonia aspiration [Recovered/Resolved]
  - Asthenia [Recovered/Resolved]
  - Palpitations [Recovered/Resolved]
  - Haemoglobin decreased [Recovered/Resolved]
  - Nausea [Recovered/Resolved]
  - Vomiting [Recovered/Resolved]
  - Platelet count decreased [Unknown]
  - Hyperchlorhydria [Unknown]
  - Gastric disorder [Unknown]
  - Decreased appetite [Unknown]
